FAERS Safety Report 14241098 (Version 1)
Quarter: 2017Q4

REPORT INFORMATION
  Report Type: Spontaneous
  Country: US (occurrence: US)
  Receive Date: 20171130
  Receipt Date: 20171130
  Transmission Date: 20180321
  Serious: Yes (Hospitalization, Other)
  Sender: FDA-Public Use
  Company Number: US-MYLANLABS-2017M1075341

PATIENT
  Age: 51 Year
  Sex: Female

DRUGS (1)
  1. ROPIVACAINE [Suspect]
     Active Substance: ROPIVACAINE
     Indication: POSTOPERATIVE ANALGESIA
     Dosage: 120MG AT 0.2% CONCENTRATION
     Route: 050

REACTIONS (6)
  - Nystagmus [Recovered/Resolved]
  - Brain stem syndrome [Recovered/Resolved]
  - Quadriparesis [Recovered/Resolved]
  - Eye movement disorder [Recovered/Resolved]
  - Pupil fixed [Recovered/Resolved]
  - Areflexia [Recovered/Resolved]
